FAERS Safety Report 7048793-1 (Version None)
Quarter: 2010Q4

REPORT INFORMATION
  Report Type: 
  Country: None (occurrence: None)
  Receive Date: 20101018
  Receipt Date: 20101004
  Transmission Date: 20110411
  Serious: Yes (Life-Threatening, Hospitalization)
  Sender: FDA-Public Use
  Company Number: PHHY2010AT65520

PATIENT
  Sex: Male
  Weight: 64.6 kg

DRUGS (12)
  1. LEPONEX [Suspect]
     Dosage: 50 MG
     Dates: start: 20100909
  2. LEPONEX [Suspect]
     Dosage: 75 MG
     Dates: start: 20100910
  3. LEPONEX [Suspect]
     Dosage: 125 MG
     Dates: start: 20100911
  4. CISORDINOL [Suspect]
     Dosage: 20 MG
     Dates: start: 20100913
  5. CISORDINOL [Suspect]
     Dosage: 40 MG
     Dates: start: 20100914
  6. RISPERDAL [Concomitant]
     Dosage: UNK
     Dates: start: 20090901, end: 20100913
  7. RISPERDAL [Concomitant]
     Dosage: 04 MG
     Dates: start: 20100914
  8. RISPERDAL [Concomitant]
     Dosage: 02 MG
     Dates: start: 20100915
  9. RISPERDAL [Concomitant]
     Dosage: 02 MG
     Dates: start: 20100916
  10. RISPERDAL [Concomitant]
     Dosage: 1.5 MG
     Dates: start: 20100917
  11. RISPERDAL D [Concomitant]
     Dosage: 50 MG
     Dates: start: 20100902
  12. TEMESTA [Concomitant]
     Dosage: 7.5 MG
     Dates: start: 20100801, end: 20100903

REACTIONS (10)
  - ANTIPSYCHOTIC DRUG LEVEL BELOW THERAPEUTIC [None]
  - BLOOD PRESSURE DECREASED [None]
  - HAEMATEMESIS [None]
  - HYPOCHLORAEMIA [None]
  - HYPONATRAEMIA [None]
  - NAUSEA [None]
  - SOMNOLENCE [None]
  - TREATMENT NONCOMPLIANCE [None]
  - VOMITING [None]
  - WHITE BLOOD CELL COUNT INCREASED [None]
